FAERS Safety Report 6415388-X (Version None)
Quarter: 2009Q4

REPORT INFORMATION
  Report Type: 
  Country: None (occurrence: None)
  Receive Date: 20091027
  Receipt Date: 20091014
  Transmission Date: 20100525
  Serious: Yes (Other)
  Sender: FDA-Public Use
  Company Number: ES-RANBAXY-2009RR-28680

PATIENT
  Age: 30 Year
  Sex: Male

DRUGS (2)
  1. TOPIRAMATE [Suspect]
     Indication: MIGRAINE
     Dosage: 25 MG, QD
  2. TOPIRAMATE [Suspect]
     Dosage: 100 MG, QD

REACTIONS (1)
  - RAPID EYE MOVEMENTS SLEEP ABNORMAL [None]
